FAERS Safety Report 25526243 (Version 1)
Quarter: 2025Q3

REPORT INFORMATION
  Report Type: Spontaneous
  Country: CN (occurrence: CN)
  Receive Date: 20250707
  Receipt Date: 20250707
  Transmission Date: 20251020
  Serious: Yes (Other)
  Sender: PFIZER
  Company Number: CN-PFIZER INC-PV202500078799

PATIENT
  Age: 78 Year
  Sex: Male
  Weight: 62 kg

DRUGS (4)
  1. TIGECYCLINE [Suspect]
     Active Substance: TIGECYCLINE
     Indication: Anti-infective therapy
     Dosage: 100 MG, 2X/DAY
     Route: 041
     Dates: start: 20250521, end: 20250612
  2. TIGECYCLINE [Suspect]
     Active Substance: TIGECYCLINE
     Indication: Pneumonia
  3. MEROPENEM [Concomitant]
     Active Substance: MEROPENEM
     Indication: Anti-infective therapy
     Dosage: 1 G, 3X/DAY
     Route: 041
     Dates: start: 20250531, end: 20250612
  4. MEROPENEM [Concomitant]
     Active Substance: MEROPENEM
     Indication: Pneumonia

REACTIONS (5)
  - Liver injury [Recovering/Resolving]
  - Bile duct stone [Unknown]
  - Disease recurrence [Unknown]
  - Biliary dilatation [Unknown]
  - Off label use [Unknown]

NARRATIVE: CASE EVENT DATE: 20250521
